FAERS Safety Report 5203590-4 (Version None)
Quarter: 2007Q1

REPORT INFORMATION
  Report Type: 
  Country: None (occurrence: None)
  Receive Date: 20070105
  Receipt Date: 20061220
  Transmission Date: 20070707
  Serious: Yes (Death, Hospitalization)
  Sender: FDA-Public Use
  Company Number: DAV-AE-MTX-06-004

PATIENT
  Age: 73 Year
  Sex: Female

DRUGS (6)
  1. METHOTREXATE [Suspect]
     Indication: RHEUMATOID ARTHRITIS
     Dosage: 7.5 MG, PO, QD;
     Dates: start: 20040621, end: 20040629
  2. PREDNISOLONE [Concomitant]
  3. FOLIC ACID [Concomitant]
  4. MORPHINE SULFATE [Concomitant]
  5. ROFECOXIB [Concomitant]
  6. NITRAZEPAM [Concomitant]

REACTIONS (21)
  - ABDOMINAL PAIN [None]
  - AORTIC ARTERIOSCLEROSIS [None]
  - AORTIC CALCIFICATION [None]
  - ARTERIOSCLEROSIS CORONARY ARTERY [None]
  - BLOOD PRESSURE DIASTOLIC DECREASED [None]
  - BONE MARROW DISORDER [None]
  - CORONARY ARTERY OCCLUSION [None]
  - CORONARY ARTERY THROMBOSIS [None]
  - DEHYDRATION [None]
  - DRUG TOXICITY [None]
  - HEART RATE INCREASED [None]
  - HERPES ZOSTER [None]
  - IMMUNOSUPPRESSION [None]
  - INAPPROPRIATE SCHEDULE OF DRUG ADMINISTRATION [None]
  - MYOCARDIAL INFARCTION [None]
  - NAUSEA [None]
  - NEUTROPENIC SEPSIS [None]
  - ORAL CANDIDIASIS [None]
  - PANCYTOPENIA [None]
  - RESPIRATORY RATE INCREASED [None]
  - VOMITING [None]
